FAERS Safety Report 5646573-2 (Version None)
Quarter: 2008Q1

REPORT INFORMATION
  Report Type: 
  Country: None (occurrence: None)
  Receive Date: 20080227
  Receipt Date: 20080215
  Transmission Date: 20080703
  Serious: Yes (Other)
  Sender: FDA-Public Use
  Company Number: 100#01#2008-00899

PATIENT
  Sex: Male

DRUGS (1)
  1. FLUMYCON (FLUCONAZOLE) [Suspect]
     Indication: BLASTOMYCOSIS
     Dosage: 100 MG, ORAL
     Route: 048

REACTIONS (1)
  - ECZEMA VESICULAR [None]
